FAERS Safety Report 4629591-2 (Version None)
Quarter: 2005Q2

REPORT INFORMATION
  Report Type: 
  Country: None (occurrence: None)
  Receive Date: 20050406
  Receipt Date: 20040326
  Transmission Date: 20051028
  Serious: Yes (Death, Hospitalization)
  Sender: FDA-Public Use
  Company Number: 2004SA000068

PATIENT

DRUGS (1)
  1. THYMOGLOBULIN [Suspect]

REACTIONS (1)
  - SEPSIS [None]
